FAERS Safety Report 6701088-5 (Version None)
Quarter: 2010Q2

REPORT INFORMATION
  Report Type: 
  Country: None (occurrence: None)
  Receive Date: 20100428
  Receipt Date: 20100428
  Transmission Date: 20101027
  Serious: Yes (Hospitalization)
  Sender: FDA-Public Use
  Company Number: None

PATIENT
  Sex: Female
  Weight: 60 kg

DRUGS (3)
  1. CARBOPLATIN [Suspect]
     Dosage: 430 MG
  2. ERBITUX [Suspect]
     Dosage: 400 MG
  3. TAXOL [Suspect]
     Dosage: 320 MG

REACTIONS (15)
  - APHTHOUS STOMATITIS [None]
  - DECREASED APPETITE [None]
  - DEHYDRATION [None]
  - FALL [None]
  - GASTRITIS [None]
  - HEAD INJURY [None]
  - HIATUS HERNIA [None]
  - HYPOPHAGIA [None]
  - HYPOVOLAEMIA [None]
  - LOSS OF CONSCIOUSNESS [None]
  - NEUTROPENIA [None]
  - OESOPHAGITIS [None]
  - PRESYNCOPE [None]
  - SKIN LACERATION [None]
  - SYNCOPE [None]
